FAERS Safety Report 4895256-5 (Version None)
Quarter: 2006Q1

REPORT INFORMATION
  Report Type: 
  Country: None (occurrence: None)
  Receive Date: 20060130
  Receipt Date: 20050920
  Transmission Date: 20060701
  Serious: Yes (Other)
  Sender: FDA-Public Use
  Company Number: FR-GLAXOSMITHKLINE-B0394834A

PATIENT
  Age: 89 Year
  Sex: Male

DRUGS (12)
  1. LAMICTAL [Suspect]
     Indication: EPILEPSY
     Dosage: 1UNIT TWICE PER DAY
     Route: 048
     Dates: start: 20050729, end: 20050919
  2. LEVOTHYROX [Concomitant]
     Indication: DRUG USE FOR UNKNOWN INDICATION
     Dosage: 100MCG PER DAY
     Route: 048
  3. HYPERIUM [Concomitant]
     Indication: DRUG USE FOR UNKNOWN INDICATION
     Dosage: 1MG TWICE PER DAY
     Route: 048
  4. ISOPTIN [Concomitant]
     Indication: DRUG USE FOR UNKNOWN INDICATION
     Dosage: 120MG PER DAY
     Route: 048
  5. KARDEGIC [Concomitant]
     Indication: DRUG USE FOR UNKNOWN INDICATION
     Dosage: 75MG PER DAY
     Route: 048
  6. LASILIX [Concomitant]
     Indication: DRUG USE FOR UNKNOWN INDICATION
     Dosage: 20MG PER DAY
     Route: 048
  7. COLLODION [Concomitant]
     Indication: DRUG USE FOR UNKNOWN INDICATION
     Route: 065
  8. FLEET PHOSPHO-SODA [Concomitant]
     Indication: DRUG USE FOR UNKNOWN INDICATION
     Route: 065
  9. VALPROIC ACID [Concomitant]
     Indication: DRUG USE FOR UNKNOWN INDICATION
     Dosage: 500MG TWICE PER DAY
     Route: 048
  10. TRIFLUCAN [Concomitant]
     Indication: DRUG USE FOR UNKNOWN INDICATION
     Route: 065
  11. DIFFU-K [Concomitant]
     Indication: DRUG USE FOR UNKNOWN INDICATION
     Dosage: 3CAP PER DAY
     Route: 048
  12. GENTAMICIN [Concomitant]
     Indication: PYELONEPHRITIS
     Dosage: 80MG PER DAY
     Route: 042
     Dates: start: 20050822, end: 20050831

REACTIONS (2)
  - PURPURA NON-THROMBOCYTOPENIC [None]
  - RASH [None]
